FAERS Safety Report 18145232 (Version 1)
Quarter: 2020Q3

REPORT INFORMATION
  Report Type: Spontaneous
  Country: US (occurrence: US)
  Receive Date: 20200813
  Receipt Date: 20200813
  Transmission Date: 20201103
  Serious: Yes (Hospitalization)
  Sender: FDA-Public Use
  Company Number: None

PATIENT
  Age: 47 Year
  Sex: Male
  Weight: 103.5 kg

DRUGS (10)
  1. TADALAFIL. [Concomitant]
     Active Substance: TADALAFIL
  2. PRAVASTATIN. [Concomitant]
     Active Substance: PRAVASTATIN
  3. METOPROLOL. [Concomitant]
     Active Substance: METOPROLOL
  4. TESTOSTERONE INJECTIONS [Suspect]
     Active Substance: TESTOSTERONE
     Indication: BLOOD TESTOSTERONE ABNORMAL
     Dosage: ?          QUANTITY:1 INJECTION(S);OTHER FREQUENCY:1X PER WEEK;?
     Route: 058
     Dates: start: 20180101, end: 20200730
  5. PANTOPRAZOLE [Concomitant]
     Active Substance: PANTOPRAZOLE
  6. ASPIRIN 81MG [Concomitant]
     Active Substance: ASPIRIN
  7. ATORVASTATIN [Concomitant]
     Active Substance: ATORVASTATIN
  8. LISINOPRIL. [Concomitant]
     Active Substance: LISINOPRIL
  9. TESTOSTERONE INJECTIONS [Concomitant]
     Active Substance: TESTOSTERONE
  10. TICAGRELOR. [Concomitant]
     Active Substance: TICAGRELOR

REACTIONS (2)
  - Therapy cessation [None]
  - Myocardial infarction [None]

NARRATIVE: CASE EVENT DATE: 20200810
